FAERS Safety Report 4724455-8 (Version None)
Quarter: 2005Q3

REPORT INFORMATION
  Report Type: 
  Country: None (occurrence: None)
  Receive Date: 20050721
  Receipt Date: 20050711
  Transmission Date: 20060218
  Serious: Yes (Hospitalization)
  Sender: FDA-Public Use
  Company Number: 200510678BVD

PATIENT
  Age: 56 Year
  Sex: Female
  Weight: 75 kg

DRUGS (1)
  1. AVELOX [Suspect]
     Dosage: ORAL
     Route: 048
     Dates: start: 20050706

REACTIONS (2)
  - ASTHMA [None]
  - SHOCK [None]
